FAERS Safety Report 8381775 (Version 6)
Quarter: 2013Q1

REPORT INFORMATION
  Report Type: Spontaneous
  Country: US (occurrence: US)
  Receive Date: 20120201
  Receipt Date: 20130102
  Transmission Date: 20140127
  Serious: Yes (Hospitalization, Other)
  Sender: FDA-Public Use
  Company Number: US-PFIZER INC-2012025298

PATIENT
  Age: 53 Year
  Sex: Male
  Weight: 49.89 kg

DRUGS (16)
  1. CHANTIX [Suspect]
     Indication: SMOKING CESSATION THERAPY
     Dosage: 0.5 MG, 2X/DAY
     Route: 048
     Dates: start: 201107, end: 2011
  2. CHANTIX [Suspect]
     Dosage: UNK
     Route: 048
     Dates: start: 2011
  3. CHANTIX [Suspect]
     Dosage: UNK, DAILY
     Route: 048
     Dates: start: 2012
  4. CHANTIX [Suspect]
     Dosage: 5 MG, UNK
     Route: 048
     Dates: start: 2012, end: 201206
  5. LYRICA [Suspect]
     Indication: FIBROMYALGIA
     Dosage: 200 MG, 3X/DAY
     Route: 048
     Dates: start: 200911
  6. LYRICA [Suspect]
     Indication: CONVULSION
     Dosage: UNK
  7. KEPPRA [Suspect]
     Indication: CONVULSION
     Dosage: 750 MG, 2X/DAY
     Dates: start: 200911
  8. METHADONE [Suspect]
     Indication: NEUROPATHY PERIPHERAL
     Dosage: UNK
  9. METHADONE [Suspect]
     Indication: LIMB DISCOMFORT
  10. ULTRAM [Suspect]
     Dosage: UNK
     Dates: start: 201204
  11. KALETRA [Concomitant]
     Indication: HIV INFECTION
     Dosage: UNK
  12. COMBIVIR [Concomitant]
     Indication: HIV INFECTION
     Dosage: UNK
  13. VIREAD [Concomitant]
     Indication: HIV INFECTION
     Dosage: UNK
  14. XANAX [Concomitant]
     Indication: NERVOUS SYSTEM DISORDER
     Dosage: UNK
  15. OXYGEN [Concomitant]
     Indication: CHRONIC OBSTRUCTIVE PULMONARY DISEASE
     Dosage: UNK
  16. PANTOPRAZOLE [Concomitant]
     Dosage: UNK

REACTIONS (7)
  - Hypoxia [Unknown]
  - Dyspnoea [Unknown]
  - Abasia [Unknown]
  - Pain [Unknown]
  - Drug ineffective [Unknown]
  - Drug ineffective [Unknown]
  - Off label use [Unknown]
